FAERS Safety Report 18183988 (Version 4)
Quarter: 2020Q4

REPORT INFORMATION
  Report Type: Report from Study
  Country: US (occurrence: US)
  Receive Date: 20200823
  Receipt Date: 20201109
  Transmission Date: 20210113
  Serious: Yes (Other)
  Sender: FDA-Public Use
  Company Number: NVSC2020US228752

PATIENT
  Age: 53 Year
  Sex: Male

DRUGS (1)
  1. COSENTYX [Suspect]
     Active Substance: SECUKINUMAB
     Indication: PSORIASIS
     Dosage: 300 MG, QW
     Route: 058
     Dates: start: 202007

REACTIONS (4)
  - Nasal congestion [Unknown]
  - Sinus headache [Unknown]
  - SARS-CoV-2 test positive [Unknown]
  - Injection site haematoma [Unknown]

NARRATIVE: CASE EVENT DATE: 202008
